FAERS Safety Report 7064691-1 (Version None)
Quarter: 2010Q4

REPORT INFORMATION
  Report Type: 
  Country: None (occurrence: None)
  Receive Date: 20101019
  Receipt Date: 20101007
  Transmission Date: 20110411
  Serious: Yes (Hospitalization)
  Sender: FDA-Public Use
  Company Number: CIP10002427

PATIENT
  Age: 67 Year
  Sex: Female
  Weight: 39 kg

DRUGS (2)
  1. ACTONEL [Suspect]
     Indication: OSTEOPOROSIS
     Dosage: 150 MG ONCE MONTHLY, ORAL
     Route: 048
     Dates: start: 20101001
  2. DIOVAN [Concomitant]

REACTIONS (5)
  - BLOOD PRESSURE ABNORMAL [None]
  - BLOOD TEST ABNORMAL [None]
  - DIARRHOEA [None]
  - DIZZINESS [None]
  - SLUGGISHNESS [None]
